FAERS Safety Report 17781350 (Version 1)
Quarter: 2020Q2

REPORT INFORMATION
  Report Type: Spontaneous
  Country: US (occurrence: US)
  Receive Date: 20200513
  Receipt Date: 20200513
  Transmission Date: 20200714
  Serious: Yes (Death)
  Sender: FDA-Public Use
  Company Number: None

PATIENT
  Age: 52 Year
  Sex: Female

DRUGS (1)
  1. KISQALI [Suspect]
     Active Substance: RIBOCICLIB
     Indication: BREAST CANCER
     Dosage: ?          OTHER FREQUENCY:DAILY, 21/28 DAYS;?
     Route: 048
     Dates: start: 20200313, end: 20200415

REACTIONS (1)
  - Death [None]

NARRATIVE: CASE EVENT DATE: 20200415
